FAERS Safety Report 5101492-5 (Version None)
Quarter: 2006Q3

REPORT INFORMATION
  Report Type: 
  Country: None (occurrence: None)
  Receive Date: 20060906
  Receipt Date: 20060823
  Transmission Date: 20061208
  Serious: Yes (Other)
  Sender: FDA-Public Use
  Company Number: 000#8#2006-00342

PATIENT
  Age: 61 Year
  Sex: Female

DRUGS (6)
  1. GLYCERYL TRINITRATE, SOLUTION (GLYCERYL TRINITRATE) [Suspect]
     Indication: ACUTE CORONARY SYNDROME
     Dosage: SEE IMAGE
  2. GLYCERYL TRINITRATE, SOLUTION (GLYCERYL TRINITRATE) [Suspect]
     Indication: PRINZMETAL ANGINA
     Dosage: SEE IMAGE
  3. CALCIUM CHANNEL BLOCKERS [Suspect]
     Indication: ACUTE CORONARY SYNDROME
  4. CALCIUM CHANNEL BLOCKERS [Suspect]
     Indication: PRINZMETAL ANGINA
  5. NITRATES [Suspect]
     Indication: ACUTE CORONARY SYNDROME
  6. NITRATES [Suspect]
     Indication: PRINZMETAL ANGINA

REACTIONS (2)
  - ARTERIOSPASM CORONARY [None]
  - DRUG INEFFECTIVE [None]
